FAERS Safety Report 5839697-8 (Version None)
Quarter: 2008Q3

REPORT INFORMATION
  Report Type: 
  Country: None (occurrence: None)
  Receive Date: 20080730
  Receipt Date: 20080707
  Transmission Date: 20090109
  Serious: No
  Sender: FDA-Public Use
  Company Number: PHEH2008US05741

PATIENT
  Sex: Female

DRUGS (1)
  1. TEKTURNA [Suspect]
     Dosage: 300 MG

REACTIONS (3)
  - ABASIA [None]
  - ASTHENIA [None]
  - PARAESTHESIA [None]
